FAERS Safety Report 14216496 (Version 10)
Quarter: 2018Q1

REPORT INFORMATION
  Report Type: Report from Study
  Country: TR (occurrence: TR)
  Receive Date: 20171122
  Receipt Date: 20180220
  Transmission Date: 20180508
  Serious: Yes (Death, Life-Threatening, Hospitalization)
  Sender: FDA-Public Use
  Company Number: TR-JNJFOC-20171116508

PATIENT
  Age: 57 Year
  Sex: Female
  Weight: 111 kg

DRUGS (26)
  1. DEXAMETHASONE. [Concomitant]
     Active Substance: DEXAMETHASONE
     Indication: PLASMA CELL MYELOMA
     Route: 042
     Dates: start: 20170801, end: 20171129
  2. DYNDION [Concomitant]
     Indication: PRODUCT USED FOR UNKNOWN INDICATION
     Dates: start: 2012, end: 20171115
  3. LASIX [Concomitant]
     Active Substance: FUROSEMIDE
     Dates: start: 20171117, end: 20171124
  4. GLICLAZIDE [Concomitant]
     Active Substance: GLICLAZIDE
     Indication: PRODUCT USED FOR UNKNOWN INDICATION
     Dates: start: 2012, end: 20171115
  5. PANTACTIVE [Concomitant]
     Indication: PRODUCT USED FOR UNKNOWN INDICATION
     Dates: start: 2016, end: 20171129
  6. LANTUS [Concomitant]
     Active Substance: INSULIN GLARGINE
     Dates: start: 20171116, end: 20171129
  7. COMBIVENT [Concomitant]
     Active Substance: ALBUTEROL SULFATE\IPRATROPIUM BROMIDE
     Dates: start: 20171110, end: 20171115
  8. INSULIN CRYSTALINE [Concomitant]
     Active Substance: INSULIN PORK\INSULIN PURIFIED PORK
     Dates: start: 20171114, end: 20171114
  9. NEXIUM [Concomitant]
     Active Substance: ESOMEPRAZOLE MAGNESIUM
     Route: 048
     Dates: start: 20171024, end: 20171129
  10. PRABEX [Concomitant]
     Dates: start: 20171117, end: 20171124
  11. AVIL [Concomitant]
     Active Substance: PHENIRAMINE
     Route: 048
     Dates: start: 20170801
  12. ASIVIRAL [Concomitant]
     Active Substance: ACYCLOVIR
     Route: 048
     Dates: start: 20171024, end: 20171129
  13. PARACETAMOL [Concomitant]
     Active Substance: ACETAMINOPHEN
     Indication: PRODUCT USED FOR UNKNOWN INDICATION
     Route: 048
     Dates: start: 20170801, end: 20171129
  14. DEXAMETHASONE. [Concomitant]
     Active Substance: DEXAMETHASONE
     Dates: start: 20170906
  15. METHYLPREDNISOLONE. [Concomitant]
     Active Substance: METHYLPREDNISOLONE
     Route: 048
     Dates: start: 20170803
  16. CYMBALTA [Concomitant]
     Active Substance: DULOXETINE HYDROCHLORIDE
     Indication: PRODUCT USED FOR UNKNOWN INDICATION
     Dates: start: 2014, end: 20171129
  17. GAVISCON [Concomitant]
     Active Substance: ALUMINUM HYDROXIDE\MAGNESIUM CARBONATE
     Dates: start: 20171117, end: 20171124
  18. SINECOD [Concomitant]
     Active Substance: BUTAMIRATE CITRATE
     Dates: start: 20171117, end: 20171124
  19. MOXIFLOXACIN. [Concomitant]
     Active Substance: MOXIFLOXACIN
     Dates: start: 20171117, end: 20171124
  20. CARFILZOMIB [Suspect]
     Active Substance: CARFILZOMIB
     Indication: PLASMA CELL MYELOMA
     Route: 042
     Dates: start: 20170801, end: 20171129
  21. CARFILZOMIB [Suspect]
     Active Substance: CARFILZOMIB
     Indication: PLASMA CELL MYELOMA
     Route: 042
  22. JANUMET [Concomitant]
     Active Substance: METFORMIN HYDROCHLORIDE\SITAGLIPTIN PHOSPHATE
     Dates: start: 20171116, end: 20171129
  23. DARATUMUMAB [Suspect]
     Active Substance: DARATUMUMAB
     Indication: PLASMA CELL MYELOMA
     Route: 042
     Dates: start: 20170801, end: 20171128
  24. MONTELUKAST [Concomitant]
     Active Substance: MONTELUKAST SODIUM
     Route: 048
     Dates: start: 20170801
  25. VENTOLIN [Concomitant]
     Active Substance: ALBUTEROL SULFATE
     Dates: start: 20171117, end: 20171124
  26. FUROMID [Concomitant]
     Dates: start: 20171110, end: 20171115

REACTIONS (2)
  - Pulmonary oedema [Recovered/Resolved]
  - Cardio-respiratory arrest [Fatal]

NARRATIVE: CASE EVENT DATE: 20171108
